FAERS Safety Report 9169697 (Version 1)
Quarter: 2013Q1

REPORT INFORMATION
  Report Type: Spontaneous
  Country: US (occurrence: US)
  Receive Date: 20130318
  Receipt Date: 20130318
  Transmission Date: 20140127
  Serious: Yes (Other)
  Sender: FDA-Public Use
  Company Number: US-TEVA-392349USA

PATIENT
  Sex: Female

DRUGS (1)
  1. TRISENOX [Suspect]
     Indication: ACUTE PROMYELOCYTIC LEUKAEMIA
     Dosage: 20 DOSES
     Dates: start: 201211, end: 201212

REACTIONS (3)
  - Cytomegalovirus infection [Unknown]
  - Lethargy [Unknown]
  - Fungal infection [Unknown]
